FAERS Safety Report 6092467-0 (Version None)
Quarter: 2009Q1

REPORT INFORMATION
  Report Type: 
  Country: None (occurrence: None)
  Receive Date: 20090225
  Receipt Date: 20090220
  Transmission Date: 20090719
  Serious: Yes (Hospitalization)
  Sender: FDA-Public Use
  Company Number: FR-MERCK-0902FRA00065

PATIENT
  Age: 48 Year
  Sex: Male

DRUGS (4)
  1. FOSAMAX [Suspect]
     Indication: OSTEOPOROSIS
     Route: 048
     Dates: start: 20060101, end: 20081001
  2. AZATHIOPRINE [Suspect]
     Indication: COLITIS ULCERATIVE
     Route: 048
     Dates: start: 20050101
  3. SULFASALAZINE [Suspect]
     Indication: COLITIS ULCERATIVE
     Route: 048
     Dates: start: 20050101
  4. CYCLOSPORINE [Suspect]
     Route: 065
     Dates: start: 20040101, end: 20050101

REACTIONS (1)
  - OSTEONECROSIS [None]
